FAERS Safety Report 25980315 (Version 1)
Quarter: 2025Q4

REPORT INFORMATION
  Report Type: Spontaneous
  Country: US (occurrence: US)
  Receive Date: 20251030
  Receipt Date: 20251030
  Transmission Date: 20260118
  Serious: No
  Sender: LNHC, INC.
  Company Number: US-LNHC, INC.-2025PEL00009

PATIENT

DRUGS (1)
  1. ZELSUVMI [Suspect]
     Active Substance: BERDAZIMER SODIUM
     Dosage: UNK
     Route: 061
     Dates: start: 202508

REACTIONS (1)
  - Application site pruritus [Not Recovered/Not Resolved]

NARRATIVE: CASE EVENT DATE: 20250801
